FAERS Safety Report 24428995 (Version 1)
Quarter: 2024Q4

REPORT INFORMATION
  Report Type: Spontaneous
  Country: US (occurrence: None)
  Receive Date: 20241011
  Receipt Date: 20241011
  Transmission Date: 20250115
  Serious: Yes (Death)
  Sender: Public
  Company Number: None

PATIENT
  Age: 65 Year
  Sex: Female
  Weight: 113 kg

DRUGS (3)
  1. YESCARTA [Suspect]
     Active Substance: AXICABTAGENE CILOLEUCEL
     Indication: Diffuse large B-cell lymphoma
     Dates: start: 20240917, end: 20240917
  2. ANAKINRA [Suspect]
     Active Substance: ANAKINRA
  3. URSODIOL [Suspect]
     Active Substance: URSODIOL

REACTIONS (13)
  - Cytokine release syndrome [None]
  - Immune effector cell-associated haematotoxicity [None]
  - Pancreatitis [None]
  - Diverticulitis [None]
  - Syncope [None]
  - Loss of consciousness [None]
  - Hypertension [None]
  - Unresponsive to stimuli [None]
  - Ventricular tachycardia [None]
  - Liver function test abnormal [None]
  - Serum ferritin increased [None]
  - Haemophagocytic lymphohistiocytosis [None]
  - Respiratory disorder [None]

NARRATIVE: CASE EVENT DATE: 20241006
